FAERS Safety Report 9957132 (Version 1)
Quarter: 2014Q1

REPORT INFORMATION
  Report Type: Report from Study
  Country: US (occurrence: US)
  Receive Date: 20140304
  Receipt Date: 20140304
  Transmission Date: 20141002
  Serious: No
  Sender: FDA-Public Use
  Company Number: US-ABBVIE-13P-163-1096537-00

PATIENT
  Age: 40 Year
  Sex: Male

DRUGS (5)
  1. HUMIRA [Suspect]
     Indication: CROHN^S DISEASE
     Dates: start: 20130419
  2. PREDNISONE [Concomitant]
     Indication: CROHN^S DISEASE
  3. KEPPRA [Concomitant]
     Indication: CONVULSION
  4. BYSTOLIC [Concomitant]
     Indication: BLOOD PRESSURE MANAGEMENT
     Dosage: 5 MG DAILY
  5. FLONASE [Concomitant]
     Indication: HYPERSENSITIVITY
     Dosage: 1 SQUIRT EACH NOSTRIL PER DAY

REACTIONS (2)
  - Hypoaesthesia [Not Recovered/Not Resolved]
  - Pain in extremity [Not Recovered/Not Resolved]
